FAERS Safety Report 4733370-5 (Version None)
Quarter: 2005Q3

REPORT INFORMATION
  Report Type: 
  Country: None (occurrence: None)
  Receive Date: 20050801
  Receipt Date: 20050801
  Transmission Date: 20060218
  Serious: Yes (Hospitalization)
  Sender: FDA-Public Use
  Company Number: None

PATIENT
  Age: 50 Year
  Sex: Male

DRUGS (4)
  1. DICLOFENAC [Suspect]
     Indication: PAIN
     Dosage: 75 MG BID
     Dates: start: 20050613
  2. CLONIDINE [Concomitant]
  3. LORATADINE [Concomitant]
  4. ADALAT CC [Concomitant]

REACTIONS (1)
  - NEPHRITIS INTERSTITIAL [None]
